FAERS Safety Report 16773732 (Version 2)
Quarter: 2019Q4

REPORT INFORMATION
  Report Type: Report from Study
  Country: EG (occurrence: EG)
  Receive Date: 20190904
  Receipt Date: 20191020
  Transmission Date: 20200122
  Serious: Yes (Hospitalization, Other)
  Sender: FDA-Public Use
  Company Number: PHHY2019EG199606

PATIENT
  Age: 41 Year
  Sex: Male

DRUGS (4)
  1. TASIGNA [Suspect]
     Active Substance: NILOTINIB
     Dosage: 800 MG, QD
     Route: 065
     Dates: start: 201903, end: 201906
  2. GLIVEC [Suspect]
     Active Substance: IMATINIB MESYLATE
     Indication: CHRONIC MYELOID LEUKAEMIA
     Dosage: 400 MG, QD
     Route: 065
     Dates: start: 201703, end: 201810
  3. GLIVEC [Suspect]
     Active Substance: IMATINIB MESYLATE
     Dosage: 400 MG, QD
     Route: 065
     Dates: end: 201902
  4. TASIGNA [Suspect]
     Active Substance: NILOTINIB
     Indication: CHRONIC MYELOID LEUKAEMIA
     Dosage: 800 MG, QD
     Route: 065
     Dates: start: 201902

REACTIONS (9)
  - Renal neoplasm [Recovering/Resolving]
  - Renal abscess [Recovering/Resolving]
  - Splenomegaly [Recovering/Resolving]
  - White blood cell count increased [Not Recovered/Not Resolved]
  - Pain [Recovering/Resolving]
  - Gout [Recovering/Resolving]
  - Drug ineffective [Not Recovered/Not Resolved]
  - Ureteral disorder [Recovering/Resolving]
  - Inappropriate schedule of product administration [Unknown]

NARRATIVE: CASE EVENT DATE: 201703
